FAERS Safety Report 9896593 (Version 1)
Quarter: 2014Q1

REPORT INFORMATION
  Report Type: Spontaneous
  Country: US (occurrence: US)
  Receive Date: 20140213
  Receipt Date: 20140213
  Transmission Date: 20141002
  Serious: No
  Sender: FDA-Public Use
  Company Number: US-BRISTOL-MYERS SQUIBB COMPANY-19135680

PATIENT
  Age: 57 Year
  Sex: Female
  Weight: 55.78 kg

DRUGS (14)
  1. ORENCIA [Suspect]
     Indication: RHEUMATOID ARTHRITIS
     Dates: start: 20120520, end: 20130120
  2. AZITHROMYCIN [Concomitant]
  3. VITAMIN B COMPLEX [Concomitant]
  4. MULTIVITAMIN [Concomitant]
  5. RELAFEN [Concomitant]
  6. SINGULAIR [Concomitant]
  7. VITAMIN D [Concomitant]
  8. CETRIZINE [Concomitant]
  9. FISH OIL [Concomitant]
  10. FLONASE [Concomitant]
  11. LISINOPRIL [Concomitant]
  12. LORATADINE [Concomitant]
  13. METHOTREXATE [Concomitant]
  14. METHYLSULFONYLMETHANE [Concomitant]

REACTIONS (2)
  - Dizziness [Unknown]
  - Nausea [Unknown]
